FAERS Safety Report 6111559-0 (Version None)
Quarter: 2009Q1

REPORT INFORMATION
  Report Type: 
  Country: None (occurrence: None)
  Receive Date: 20090310
  Receipt Date: 20090310
  Transmission Date: 20090719
  Serious: Yes (Other)
  Sender: FDA-Public Use
  Company Number: None

PATIENT
  Sex: Female

DRUGS (1)
  1. VERAMYST [Suspect]
     Indication: MULTIPLE ALLERGIES
     Dosage: 1 SPRAY TWO TIMES A DAY NASAL
     Route: 045
     Dates: start: 20080515, end: 20080717

REACTIONS (1)
  - NASAL MUCOSAL DISORDER [None]
